FAERS Safety Report 4803614-X (Version None)
Quarter: 2005Q4

REPORT INFORMATION
  Report Type: 
  Country: None (occurrence: None)
  Receive Date: 20051014
  Receipt Date: 20050912
  Transmission Date: 20060501
  Serious: Yes (Other)
  Sender: FDA-Public Use
  Company Number: 2005139130

PATIENT
  Age: 57 Year
  Sex: Female
  Weight: 70 kg

DRUGS (1)
  1. CABERGOLINE [Suspect]
     Indication: PARKINSON'S DISEASE
     Dosage: (8 MG, DAILY), ORAL
     Route: 048
     Dates: start: 20030101, end: 20040815

REACTIONS (2)
  - PLEURAL FIBROSIS [None]
  - PNEUMONITIS [None]
